FAERS Safety Report 9879432 (Version 1)
Quarter: 2014Q1

REPORT INFORMATION
  Report Type: Spontaneous
  Country: FR (occurrence: FR)
  Receive Date: 20140206
  Receipt Date: 20140206
  Transmission Date: 20141002
  Serious: Yes (Other)
  Sender: FDA-Public Use
  Company Number: FR-ASTRAZENECA-2014SE07131

PATIENT
  Age: 1028 Month
  Sex: Male

DRUGS (3)
  1. ZOLADEX [Suspect]
     Indication: PROSTATE CANCER
     Route: 058
     Dates: start: 201208
  2. XATRAL [Concomitant]
     Indication: PROSTATIC ADENOMA
     Route: 048
  3. EPO [Concomitant]
     Dates: start: 201401

REACTIONS (5)
  - Malignant neoplasm progression [Not Recovered/Not Resolved]
  - Decubitus ulcer [Not Recovered/Not Resolved]
  - Muscle spasms [Recovered/Resolved]
  - Hypokinesia [Not Recovered/Not Resolved]
  - Arthralgia [Unknown]
